FAERS Safety Report 17640794 (Version 6)
Quarter: 2020Q2

REPORT INFORMATION
  Report Type: Spontaneous
  Country: US (occurrence: US)
  Receive Date: 20200407
  Receipt Date: 20200506
  Transmission Date: 20200713
  Serious: Yes (Other)
  Sender: FDA-Public Use
  Company Number: US-GLAXOSMITHKLINE-US2020AMR059795

PATIENT
  Sex: Female

DRUGS (2)
  1. ZEJULA [Suspect]
     Active Substance: NIRAPARIB
     Indication: OVARIAN CANCER
     Dosage: 300 MG,DAILY
     Dates: start: 20200312
  2. ZEJULA [Suspect]
     Active Substance: NIRAPARIB
     Dosage: 100 MG, QD
     Dates: start: 20200316

REACTIONS (13)
  - Pruritus [Unknown]
  - Neuropathy peripheral [Unknown]
  - White blood cell count decreased [Not Recovered/Not Resolved]
  - Haemoglobin decreased [Unknown]
  - Muscular weakness [Unknown]
  - Arthralgia [Unknown]
  - Blood count abnormal [Not Recovered/Not Resolved]
  - Neutrophil count decreased [Unknown]
  - Renal impairment [Unknown]
  - Dry mouth [Unknown]
  - Platelet count decreased [Not Recovered/Not Resolved]
  - Hot flush [Unknown]
  - Red blood cell count decreased [Unknown]
